FAERS Safety Report 5263210-X (Version None)
Quarter: 2007Q1

REPORT INFORMATION
  Report Type: 
  Country: None (occurrence: None)
  Receive Date: 20061219
  Receipt Date: 20061031
  Transmission Date: 20070707
  Serious: No
  Sender: FDA-Public Use
  Company Number: 2006US002427

PATIENT
  Age: 67 Year
  Sex: Female

DRUGS (6)
  1. VESICARE [Suspect]
     Indication: MICTURITION URGENCY
     Dosage: 5 MG, ORAL
     Route: 048
     Dates: start: 20061026
  2. ATENOLOL [Concomitant]
  3. ARAVA [Concomitant]
  4. CYCLOBENZAPRINE (CYCLOBENAZEPRINE) [Concomitant]
  5. PREMPRO [Concomitant]
  6. METHOTREXATE (METHOTREXATE SODIUM) [Concomitant]

REACTIONS (1)
  - THROAT TIGHTNESS [None]
